FAERS Safety Report 20151904 (Version 1)
Quarter: 2021Q4

REPORT INFORMATION
  Report Type: Report from Study
  Country: DE (occurrence: DE)
  Receive Date: 20211206
  Receipt Date: 20211206
  Transmission Date: 20220303
  Serious: Yes (Life-Threatening)
  Sender: FDA-Public Use
  Company Number: DE-Global Blood Therapeutics Inc-DE-GBT-21-04337

PATIENT
  Age: 22 Year
  Sex: Male
  Weight: 54 kg

DRUGS (6)
  1. VOXELOTOR [Suspect]
     Active Substance: VOXELOTOR
     Indication: Sickle cell disease
     Route: 048
     Dates: start: 20211008, end: 202111
  2. VOXELOTOR [Suspect]
     Active Substance: VOXELOTOR
     Route: 048
     Dates: start: 20211121
  3. VIT D 2000 [Concomitant]
     Indication: Product used for unknown indication
  4. VITAMIN B12 [Concomitant]
     Active Substance: CYANOCOBALAMIN
     Indication: Product used for unknown indication
  5. FOLIC ACID [Concomitant]
     Active Substance: FOLIC ACID
     Indication: Product used for unknown indication
  6. TRANSFUSION [Concomitant]
     Indication: Hypersplenism
     Dosage: 2 RBC UNITS
     Dates: start: 20211122

REACTIONS (1)
  - Hypersplenism [Not Recovered/Not Resolved]

NARRATIVE: CASE EVENT DATE: 20211121
